FAERS Safety Report 12621386 (Version 2)
Quarter: 2016Q3

REPORT INFORMATION
  Report Type: Spontaneous
  Country: US (occurrence: US)
  Receive Date: 20160804
  Receipt Date: 20160815
  Transmission Date: 20161109
  Serious: No
  Sender: FDA-Public Use
  Company Number: US-PFIZER INC-2015307779

PATIENT
  Age: 58 Year
  Sex: Female
  Weight: 83.9 kg

DRUGS (27)
  1. CHLOROPHYLL [Concomitant]
     Dosage: 100 MG, DAILY
     Route: 048
  2. DELTASONE [Concomitant]
     Active Substance: PREDNISONE
     Dosage: 20 MG, 2X/DAY (TAKE WITH FOOD)
  3. COMPAZINE [Concomitant]
     Active Substance: PROCHLORPERAZINE MALEATE
     Indication: VOMITING
  4. PRINIVIL [Concomitant]
     Active Substance: LISINOPRIL
     Dosage: 5 MG, UNK
  5. FASLODEX [Suspect]
     Active Substance: FULVESTRANT
     Indication: BREAST CANCER METASTATIC
     Dosage: UNK
     Dates: start: 20151020
  6. VITAMIN D3 [Concomitant]
     Active Substance: CHOLECALCIFEROL
     Dosage: 1000 IU, DAILY
     Route: 048
  7. AROMASIN [Concomitant]
     Active Substance: EXEMESTANE
     Indication: BREAST CANCER
     Dosage: 25 MG, DAILY
     Route: 048
     Dates: start: 20160615
  8. NOVOLOG [Concomitant]
     Active Substance: INSULIN ASPART
     Dosage: 100 IU/ML, (BEFORE EACH MEAL)
  9. INSULIN [Concomitant]
     Active Substance: INSULIN NOS
     Dosage: UNK UNK, DAILY
  10. DILAUDID [Concomitant]
     Active Substance: HYDROMORPHONE HYDROCHLORIDE
     Dosage: 2 MG, UNK
  11. FLEXERIL [Concomitant]
     Active Substance: CYCLOBENZAPRINE HYDROCHLORIDE
     Dosage: 10 MG, 3X/DAY
     Route: 048
  12. EVEROLIMUS [Concomitant]
     Active Substance: EVEROLIMUS
     Dosage: 10 MG, DAILY
     Route: 048
  13. AROMASIN [Concomitant]
     Active Substance: EXEMESTANE
     Dosage: 25 MG, DAILY
     Route: 048
     Dates: start: 20160707
  14. NEURONTIN [Concomitant]
     Active Substance: GABAPENTIN
     Dosage: 300 MG, 2X/DAY
     Route: 048
  15. LANTUS [Concomitant]
     Active Substance: INSULIN GLARGINE
     Dosage: 100 IU/ML, DAILY (INJECT 38 UNITS UNDER THE SKIN DAILY AT BEDTIME)
  16. ROXICODONE [Concomitant]
     Active Substance: OXYCODONE HYDROCHLORIDE
     Indication: PAIN
     Dosage: 5 MG, AS NEEDED (EVERY FOUR HOURS)
     Route: 048
  17. ULTRAM [Concomitant]
     Active Substance: TRAMADOL HYDROCHLORIDE
     Indication: PAIN
     Dosage: 50 MG, AS NEEDED (EVERY 6 HOURS)
     Route: 048
  18. FISH OIL [Concomitant]
     Active Substance: FISH OIL
     Dosage: 1000 MG, DAILY
     Route: 048
  19. DELTASONE [Concomitant]
     Active Substance: PREDNISONE
     Dosage: 20 MG, 1X/DAY (TAKE WITH FOOD)
     Route: 048
  20. COUMADIN [Concomitant]
     Active Substance: WARFARIN SODIUM
     Dosage: 7.5 MG, (ALL OTHER DAYS)
     Route: 048
  21. IBRANCE [Suspect]
     Active Substance: PALBOCICLIB
     Indication: BREAST CANCER METASTATIC
     Dosage: 100 MG, 1 CAPSULE, DAILY
     Route: 048
     Dates: start: 20151020
  22. COUMADIN [Concomitant]
     Active Substance: WARFARIN SODIUM
     Dosage: 5 MG, (MON, THU)
     Route: 048
  23. ZESTRIL [Concomitant]
     Active Substance: LISINOPRIL
     Dosage: 5 MG, UNK
  24. DELTASONE [Concomitant]
     Active Substance: PREDNISONE
     Dosage: 20 MG, 3X/DAY (TAKE WITH FOOD)
  25. COMPAZINE [Concomitant]
     Active Substance: PROCHLORPERAZINE MALEATE
     Indication: NAUSEA
     Dosage: 10 MG, AS NEEDED (EVERY 6 HOURS)
     Route: 048
  26. COLACE [Concomitant]
     Active Substance: DOCUSATE SODIUM
     Dosage: 100 MG, UNK
  27. THERA-M [Concomitant]
     Dosage: 1 TABLET, DAILY AT BEDTIME
     Route: 048

REACTIONS (6)
  - Disease progression [Unknown]
  - Breast cancer metastatic [Unknown]
  - Heart rate increased [Unknown]
  - Localised infection [Unknown]
  - Asthenia [Unknown]
  - Pain [Unknown]

NARRATIVE: CASE EVENT DATE: 201605
